FAERS Safety Report 4590624-3 (Version None)
Quarter: 2005Q1

REPORT INFORMATION
  Report Type: 
  Country: None (occurrence: None)
  Receive Date: 20050215
  Receipt Date: 20050201
  Transmission Date: 20050727
  Serious: Yes (Hospitalization, Other)
  Sender: FDA-Public Use
  Company Number: 2005-123873-NL

PATIENT
  Age: 73 Year
  Sex: Male
  Weight: 102.6 kg

DRUGS (3)
  1. TICE BCG [Suspect]
     Indication: BLADDER CANCER
     Dosage: INTRAVESICAL, INSTILLATIONS
     Route: 043
     Dates: start: 20041101
  2. ATENOLOL [Concomitant]
  3. BENADRYL ^ACHE^ [Concomitant]

REACTIONS (11)
  - ANAEMIA HAEMOLYTIC AUTOIMMUNE [None]
  - BLOOD BILIRUBIN INCREASED [None]
  - DISEASE RECURRENCE [None]
  - DIZZINESS [None]
  - DYSPNOEA [None]
  - GRANULOCYTE COUNT INCREASED [None]
  - HAEMATURIA [None]
  - HAEMORRHAGE URINARY TRACT [None]
  - PLATELET COUNT INCREASED [None]
  - URINE LEUKOCYTE ESTERASE POSITIVE [None]
  - WHITE BLOOD CELL COUNT INCREASED [None]
